FAERS Safety Report 5803461-6 (Version None)
Quarter: 2008Q3

REPORT INFORMATION
  Report Type: 
  Country: None (occurrence: None)
  Receive Date: 20080708
  Receipt Date: 20080629
  Transmission Date: 20090109
  Serious: Yes (Hospitalization, Other)
  Sender: FDA-Public Use
  Company Number: PHHY2008BR12589

PATIENT
  Age: 29 Year
  Sex: Female
  Weight: 65 kg

DRUGS (2)
  1. VOLTAREN [Suspect]
     Dosage: 10 TABLETS
  2. ACETAMINOPHEN [Concomitant]
     Dosage: 10 TABLETS, 115MG/KG

REACTIONS (6)
  - AGITATION [None]
  - ANXIETY [None]
  - GASTRIC LAVAGE [None]
  - INTENTIONAL OVERDOSE [None]
  - SUICIDE ATTEMPT [None]
  - TREMOR [None]
